FAERS Safety Report 5161535-X (Version None)
Quarter: 2006Q4

REPORT INFORMATION
  Report Type: 
  Country: None (occurrence: None)
  Receive Date: 20061130
  Receipt Date: 20060906
  Transmission Date: 20070319
  Serious: No
  Sender: FDA-Public Use
  Company Number: US-GLAXOSMITHKLINE-A0619233A

PATIENT
  Age: 68 Year
  Sex: Female

DRUGS (4)
  1. WELLBUTRIN XL [Suspect]
     Indication: DRUG USE FOR UNKNOWN INDICATION
     Dosage: 300MG PER DAY
     Route: 048
     Dates: start: 20050101
  2. NEXIUM [Concomitant]
  3. ZETIA [Concomitant]
  4. NORVASC [Concomitant]

REACTIONS (1)
  - WEIGHT INCREASED [None]
